FAERS Safety Report 18646767 (Version 1)
Quarter: 2020Q4

REPORT INFORMATION
  Report Type: Spontaneous
  Country: US (occurrence: US)
  Receive Date: 20201222
  Receipt Date: 20201222
  Transmission Date: 20210114
  Serious: No
  Sender: FDA-Public Use
  Company Number: US-BIOVITRUM-2020US7590

PATIENT
  Age: 1 Year
  Sex: Male
  Weight: 14.6 kg

DRUGS (11)
  1. SYNAGIS [Suspect]
     Active Substance: PALIVIZUMAB
     Indication: PREMATURE BABY
  2. LORATADINE. [Concomitant]
     Active Substance: LORATADINE
     Dosage: 5 MG/5 ML SOLUTION
  3. PRILOSEC [Concomitant]
     Active Substance: OMEPRAZOLE MAGNESIUM
     Dosage: 2.5 MG SUSPDR PKT
  4. EPINEPHRINE HCL [Concomitant]
     Active Substance: EPINEPHRINE
  5. SYNAGIS [Suspect]
     Active Substance: PALIVIZUMAB
     Indication: CHRONIC RESPIRATORY DISEASE
  6. CHILDREN^S ACETAMINOPHEN [Concomitant]
     Active Substance: ACETAMINOPHEN
  7. CHILDRENS IBUPROFEN [Concomitant]
     Active Substance: IBUPROFEN
  8. ERYTHROMYCIN 2 % SOLUTION [Concomitant]
     Dosage: 2% SOLUTION
  9. CHILDREN^S MULTIVITAMIN TAB CHEW [Concomitant]
  10. SYNAGIS [Suspect]
     Active Substance: PALIVIZUMAB
     Indication: ANTIVIRAL PROPHYLAXIS
     Dosage: SYNAGIS 100MG/1ML AND  50MG/0.5ML VL LIQUID
     Route: 030
     Dates: start: 201912
  11. CYPROHEPTADINE HCL [Concomitant]
     Active Substance: CYPROHEPTADINE HYDROCHLORIDE
     Dosage: 2 MG/5 ML SYRUP

REACTIONS (2)
  - Weight decreased [Unknown]
  - Off label use [Unknown]

NARRATIVE: CASE EVENT DATE: 202012
